FAERS Safety Report 13945648 (Version 1)
Quarter: 2017Q3

REPORT INFORMATION
  Report Type: Spontaneous
  Country: US (occurrence: US)
  Receive Date: 20170907
  Receipt Date: 20170907
  Transmission Date: 20171128
  Serious: No
  Sender: FDA-Public Use
  Company Number: US-PFIZER INC-2017386329

PATIENT
  Age: 62 Year
  Sex: Female

DRUGS (1)
  1. GABAPENTIN. [Suspect]
     Active Substance: GABAPENTIN
     Dosage: 900 MG, 1X/DAY
     Route: 048

REACTIONS (3)
  - Pruritus [Unknown]
  - Drug hypersensitivity [Unknown]
  - Rash [Unknown]
